FAERS Safety Report 18647839 (Version 1)
Quarter: 2020Q4

REPORT INFORMATION
  Report Type: Spontaneous
  Country: US (occurrence: US)
  Receive Date: 20201221
  Receipt Date: 20201221
  Transmission Date: 20210114
  Serious: Yes (Death)
  Sender: FDA-Public Use
  Company Number: None

PATIENT
  Age: 92 Year
  Sex: Male
  Weight: 72 kg

DRUGS (14)
  1. ATORVASTATIN [Concomitant]
     Active Substance: ATORVASTATIN
  2. ASPIRIN. [Concomitant]
     Active Substance: ASPIRIN
  3. FERROUS SULFATE. [Concomitant]
     Active Substance: FERROUS SULFATE
  4. WARFARIN [Concomitant]
     Active Substance: WARFARIN
  5. MULTIVITAMIN [Concomitant]
     Active Substance: VITAMINS
  6. MIRTAZAPINE. [Concomitant]
     Active Substance: MIRTAZAPINE
  7. METOPROLOL. [Concomitant]
     Active Substance: METOPROLOL
  8. TAMSULOSIN [Concomitant]
     Active Substance: TAMSULOSIN
  9. LUMIGAN [Concomitant]
     Active Substance: BIMATOPROST
  10. ABIRATERONE. [Suspect]
     Active Substance: ABIRATERONE ACETATE
     Indication: PROSTATE CANCER
     Route: 048
     Dates: start: 20201118
  11. URSODIOL. [Concomitant]
     Active Substance: URSODIOL
  12. FOLIC ACID. [Concomitant]
     Active Substance: FOLIC ACID
  13. COSOPT [Concomitant]
     Active Substance: DORZOLAMIDE HYDROCHLORIDE\TIMOLOL MALEATE
  14. PREDNISONE. [Concomitant]
     Active Substance: PREDNISONE

REACTIONS (1)
  - Death [None]

NARRATIVE: CASE EVENT DATE: 20201219
